FAERS Safety Report 5234918-7 (Version None)
Quarter: 2007Q1

REPORT INFORMATION
  Report Type: 
  Country: None (occurrence: None)
  Receive Date: 20070209
  Receipt Date: 20070131
  Transmission Date: 20070707
  Serious: Yes (Other)
  Sender: FDA-Public Use
  Company Number: US-PFIZER INC-2007008988

PATIENT
  Sex: Female
  Weight: 63.5 kg

DRUGS (1)
  1. XANAX XR [Suspect]
     Indication: ANXIETY
     Route: 048
     Dates: start: 20070125, end: 20070126

REACTIONS (4)
  - CONFUSIONAL STATE [None]
  - DYSARTHRIA [None]
  - HYPERSENSITIVITY [None]
  - THROAT TIGHTNESS [None]
